FAERS Safety Report 10756302 (Version 2)
Quarter: 2015Q1

REPORT INFORMATION
  Report Type: Report from Study
  Country: BE (occurrence: BE)
  Receive Date: 20150202
  Receipt Date: 20150209
  Transmission Date: 20150721
  Serious: Yes (Death, Hospitalization)
  Sender: FDA-Public Use
  Company Number: BE-ABBVIE-15P-013-1340421-00

PATIENT
  Sex: Female

DRUGS (4)
  1. LEVODOPA/CARBIDOPA [Suspect]
     Active Substance: CARBIDOPA\LEVODOPA
     Dosage: AM: 1.3ML; CD:1.1ML/HR FOR 16HRS; ED:0.5ML
     Route: 050
     Dates: start: 20131105
  2. LEVODOPA/CARBIDOPA [Suspect]
     Active Substance: CARBIDOPA\LEVODOPA
     Indication: PARKINSON^S DISEASE
     Route: 050
     Dates: start: 20100208, end: 20100210
  3. LEVODOPA/CARBIDOPA [Suspect]
     Active Substance: CARBIDOPA\LEVODOPA
     Dosage: AM: 2.5ML; CD:2ML/HR FOR 16HRS; ED:0.5ML
     Route: 050
     Dates: start: 20100210, end: 20100212
  4. LEVODOPA/CARBIDOPA [Suspect]
     Active Substance: CARBIDOPA\LEVODOPA
     Dosage: CONTINUOUSLY MONITORED AND ADJUSTED
     Route: 050
     Dates: start: 20100212, end: 20131105

REACTIONS (3)
  - Decreased appetite [Unknown]
  - Pneumonia [Fatal]
  - General physical health deterioration [Fatal]
